FAERS Safety Report 7341248-6 (Version None)
Quarter: 2011Q1

REPORT INFORMATION
  Report Type: 
  Country: None (occurrence: None)
  Receive Date: 20110309
  Receipt Date: 20110223
  Transmission Date: 20110831
  Serious: Yes (Other)
  Sender: FDA-Public Use
  Company Number: PHHY2011US14907

PATIENT
  Sex: Female
  Weight: 52 kg

DRUGS (3)
  1. REVLIMID [Suspect]
     Indication: MYELODYSPLASTIC SYNDROME
     Dosage: 10 MG DAILY
     Route: 048
     Dates: start: 20100101
  2. REVLIMID [Suspect]
     Dosage: 05 MG DAILY
     Route: 048
     Dates: start: 20100826
  3. EXJADE [Suspect]
     Indication: MYELODYSPLASTIC SYNDROME
     Dosage: UNK
     Dates: start: 20100826

REACTIONS (3)
  - SQUAMOUS CELL CARCINOMA [None]
  - DIARRHOEA [None]
  - CYSTITIS [None]
